FAERS Safety Report 6649715-5 (Version None)
Quarter: 2010Q1

REPORT INFORMATION
  Report Type: 
  Country: None (occurrence: None)
  Receive Date: 20100324
  Receipt Date: 20100324
  Transmission Date: 20100710
  Serious: Yes (Life-Threatening, Hospitalization)
  Sender: FDA-Public Use
  Company Number: None

PATIENT
  Age: 19 Year
  Sex: Female

DRUGS (1)
  1. PROACTIV: BENZOYL PEROXIDE 2.5% [Suspect]
     Indication: ACNE
     Dosage: DAILY, PER LABEL
     Dates: start: 20091031, end: 20091115

REACTIONS (3)
  - DYSPNOEA [None]
  - SKIN DISCOLOURATION [None]
  - SWELLING FACE [None]
